FAERS Safety Report 8987910 (Version 1)
Quarter: 2012Q4

REPORT INFORMATION
  Report Type: 
  Country: IT (occurrence: IT)
  Receive Date: 20121227
  Receipt Date: 20121227
  Transmission Date: 20130627
  Serious: Yes (Hospitalization)
  Sender: FDA-Public Use
  Company Number: IT-GLAXOSMITHKLINE-B0854901A

PATIENT
  Age: 6 Year
  Sex: Female

DRUGS (3)
  1. AUGMENTIN [Suspect]
     Indication: OTITIS MEDIA
     Dosage: 11ML per day
     Route: 048
     Dates: start: 20121114, end: 20121120
  2. CEFUROXIME AXETIL [Suspect]
     Indication: OTITIS MEDIA
     Dosage: 320MG per day
     Route: 048
     Dates: start: 20121112, end: 20121114
  3. ROCEFIN [Suspect]
     Indication: URINARY TRACT INFECTION
     Route: 042

REACTIONS (3)
  - Benign intracranial hypertension [Not Recovered/Not Resolved]
  - Strabismus [Not Recovered/Not Resolved]
  - Papilloedema [Not Recovered/Not Resolved]
